FAERS Safety Report 16243352 (Version 1)
Quarter: 2019Q2

REPORT INFORMATION
  Report Type: Spontaneous
  Country: US (occurrence: US)
  Receive Date: 20190425
  Receipt Date: 20190425
  Transmission Date: 20190711
  Serious: Yes (Hospitalization)
  Sender: FDA-Public Use
  Company Number: None

PATIENT
  Age: 72 Year
  Sex: Female

DRUGS (7)
  1. ATENOLOL. [Concomitant]
     Active Substance: ATENOLOL
     Dates: start: 20190425
  2. BAYER LOW [Concomitant]
     Dates: start: 20190425
  3. MULTIPLE VIT [Concomitant]
     Dates: start: 20190425
  4. KISQALI [Suspect]
     Active Substance: RIBOCICLIB
     Indication: BREAST CANCER FEMALE
     Route: 048
     Dates: start: 20180914
  5. PROBIOTIC [Concomitant]
     Active Substance: PROBIOTICS NOS
     Dates: start: 20190425
  6. ATORVASTATIN [Concomitant]
     Active Substance: ATORVASTATIN
     Dates: start: 20190425
  7. CALCIUM [Concomitant]
     Active Substance: CALCIUM
     Dates: start: 20190425

REACTIONS (3)
  - Dehydration [None]
  - Upper respiratory tract infection [None]
  - Hypotension [None]
